FAERS Safety Report 6544779-1 (Version None)
Quarter: 2010Q1

REPORT INFORMATION
  Report Type: 
  Country: None (occurrence: None)
  Receive Date: 20100121
  Receipt Date: 20100114
  Transmission Date: 20100710
  Serious: Yes (Other)
  Sender: FDA-Public Use
  Company Number: US-BAYER-201011532NA

PATIENT
  Sex: Female

DRUGS (1)
  1. EOVIST [Suspect]
     Indication: SCAN
     Dosage: TOTAL DAILY DOSE: 30 ML

REACTIONS (4)
  - ANAPHYLACTOID REACTION [None]
  - CHEST DISCOMFORT [None]
  - DYSPNOEA [None]
  - RASH ERYTHEMATOUS [None]
